FAERS Safety Report 16322169 (Version 1)
Quarter: 2019Q2

REPORT INFORMATION
  Report Type: Report from Study
  Country: BR (occurrence: BR)
  Receive Date: 20190516
  Receipt Date: 20190516
  Transmission Date: 20190711
  Serious: Yes (Other)
  Sender: FDA-Public Use
  Company Number: BR-JNJFOC-20190401351

PATIENT
  Sex: Female

DRUGS (3)
  1. AZATHIOPRINE. [Concomitant]
     Active Substance: AZATHIOPRINE
     Route: 065
  2. REMICADE [Suspect]
     Active Substance: INFLIXIMAB
     Indication: CROHN^S DISEASE
     Route: 042
     Dates: start: 2016
  3. REMICADE [Suspect]
     Active Substance: INFLIXIMAB
     Indication: CROHN^S DISEASE
     Route: 042
     Dates: start: 2018, end: 2019

REACTIONS (12)
  - Anaemia [Unknown]
  - Off label use [Unknown]
  - Rectal stenosis [Unknown]
  - Urinary tract infection [Unknown]
  - Sinusitis [Unknown]
  - Influenza [Unknown]
  - Product use issue [Unknown]
  - Pneumonia [Unknown]
  - Neoplasm [Unknown]
  - Pulmonary mass [Unknown]
  - Product dose omission [Unknown]
  - Crohn^s disease [Not Recovered/Not Resolved]

NARRATIVE: CASE EVENT DATE: 2018
